FAERS Safety Report 5449733-9 (Version None)
Quarter: 2007Q3

REPORT INFORMATION
  Report Type: 
  Country: None (occurrence: None)
  Receive Date: 20070911
  Receipt Date: 20070911
  Transmission Date: 20080115
  Serious: Yes (Hospitalization)
  Sender: FDA-Public Use
  Company Number: None

PATIENT
  Age: 64 Year
  Sex: Male
  Weight: 72.5755 kg

DRUGS (9)
  1. TAXOTERE [Suspect]
     Dosage: 77 MG
  2. VELCADE [Suspect]
     Dosage: 3.1 MG IV
     Route: 042
  3. RITALIN [Concomitant]
  4. REMERON [Concomitant]
  5. LUNESTA [Concomitant]
  6. ZOLOFT [Concomitant]
  7. SCOPOLAMINE [Concomitant]
  8. PHENERGAN HCL [Concomitant]
  9. LORTAB [Concomitant]

REACTIONS (2)
  - DYSPNOEA [None]
  - PLEURAL EFFUSION [None]
